FAERS Safety Report 7027071-0 (Version None)
Quarter: 2010Q4

REPORT INFORMATION
  Report Type: 
  Country: None (occurrence: None)
  Receive Date: 20101004
  Receipt Date: 20100928
  Transmission Date: 20110411
  Serious: Yes (Death)
  Sender: FDA-Public Use
  Company Number: JP-SANOFI-AVENTIS-2010SA058166

PATIENT
  Age: 72 Year
  Sex: Female

DRUGS (2)
  1. RASURITEK INTRAVENOUS [Suspect]
     Indication: TUMOUR LYSIS SYNDROME
     Route: 042
     Dates: start: 20100924, end: 20100925
  2. ALL OTHER THERAPEUTIC PRODUCTS [Concomitant]
     Indication: LEUKAEMIA
     Route: 065
     Dates: start: 20100924, end: 20100925

REACTIONS (1)
  - DISEASE PROGRESSION [None]
